FAERS Safety Report 19399264 (Version 4)
Quarter: 2021Q4

REPORT INFORMATION
  Report Type: Report from Study
  Country: AT (occurrence: AT)
  Receive Date: 20210610
  Receipt Date: 20211011
  Transmission Date: 20220303
  Serious: Yes (Hospitalization)
  Sender: FDA-Public Use
  Company Number: AT-ROCHE-2587043

PATIENT
  Age: 54 Year
  Sex: Female
  Weight: 75 kg

DRUGS (39)
  1. TRASTUZUMAB [Suspect]
     Active Substance: TRASTUZUMAB
     Indication: Breast cancer
     Dosage: 600 MILLIGRAM, Q3W, MOST RECENT DOSE PRIOR TO THE EVENT: 19/FEB/2020
     Route: 042
     Dates: start: 20180328, end: 20180328
  2. TRASTUZUMAB [Suspect]
     Active Substance: TRASTUZUMAB
     Dosage: 600 MILLIGRAM, Q3W, MOST RECENT DOSE PRIOR TO THE EVENT: 19/FEB/2020
     Route: 042
     Dates: start: 20180328
  3. TRASTUZUMAB [Suspect]
     Active Substance: TRASTUZUMAB
     Dosage: 378 MILLIGRAM, Q3W
     Route: 042
     Dates: start: 20181102, end: 20181102
  4. TRASTUZUMAB [Suspect]
     Active Substance: TRASTUZUMAB
     Dosage: 372 MILLIGRAM, Q3W
     Route: 042
     Dates: start: 20180626, end: 20181010
  5. TRASTUZUMAB [Suspect]
     Active Substance: TRASTUZUMAB
     Dosage: 384 MILLIGRAM, Q3W
     Route: 042
     Dates: start: 20180515, end: 20180605
  6. TRASTUZUMAB [Suspect]
     Active Substance: TRASTUZUMAB
     Dosage: 408 MILLIGRAM, Q3W
     Route: 042
     Dates: start: 20180423, end: 20180605
  7. PACLITAXEL [Suspect]
     Active Substance: PACLITAXEL
     Indication: Breast cancer
     Dosage: 177.17 MILLIGRAM, QW, MOST RECENT DOSE PRIOR TO AE 07/DEC/2018
     Route: 042
     Dates: start: 20180416
  8. PACLITAXEL [Suspect]
     Active Substance: PACLITAXEL
     Dosage: 147.76 MILLIGRAM, QW, MOST RECENT DOSE ON 09/APR/2018
     Route: 042
     Dates: start: 20180328
  9. PACLITAXEL [Suspect]
     Active Substance: PACLITAXEL
     Dosage: 172.67 MILLIGRAM, QW
     Route: 042
     Dates: start: 20180605, end: 20180605
  10. PACLITAXEL [Suspect]
     Active Substance: PACLITAXEL
     Dosage: 177.17 MILLIGRAM, QW
     Route: 042
     Dates: start: 20160522, end: 20160529
  11. PACLITAXEL [Suspect]
     Active Substance: PACLITAXEL
     Dosage: 171.51 MILLIGRAM, QW
     Route: 042
     Dates: start: 20181102, end: 20181123
  12. PACLITAXEL [Suspect]
     Active Substance: PACLITAXEL
     Dosage: 177.17 MILLIGRAM, QW
     Route: 042
     Dates: start: 20180612, end: 20180619
  13. PACLITAXEL [Suspect]
     Active Substance: PACLITAXEL
     Dosage: 170.35 MILLIGRAM, QW
     Route: 042
     Dates: start: 20180626, end: 20180718
  14. PACLITAXEL [Suspect]
     Active Substance: PACLITAXEL
     Dosage: 177.17 MILLIGRAM, QW (MOST RECENT DOSE PRIOR TO AE 07/DEC/2018)
     Route: 042
     Dates: start: 20180416
  15. PACLITAXEL [Suspect]
     Active Substance: PACLITAXEL
     Dosage: 147.76 MILLIGRAM, QW, MOST RECENT DOSE ON 09/APR/2018
     Route: 042
     Dates: start: 20180328
  16. PACLITAXEL [Suspect]
     Active Substance: PACLITAXEL
     Dosage: 172.67 MILLIGRAM
     Route: 042
     Dates: start: 20180515
  17. PACLITAXEL [Suspect]
     Active Substance: PACLITAXEL
     Dosage: 172.67 MILLIGRAM
     Route: 042
     Dates: start: 20190102, end: 20190102
  18. PACLITAXEL [Suspect]
     Active Substance: PACLITAXEL
     Dosage: 172.67 MILLIGRAM
     Route: 042
     Dates: start: 20190116, end: 20190116
  19. PACLITAXEL [Suspect]
     Active Substance: PACLITAXEL
     Dosage: 171.51 MILLIGRAM, QW
     Route: 042
     Dates: start: 20181207, end: 20181221
  20. PACLITAXEL [Suspect]
     Active Substance: PACLITAXEL
     Dosage: 177.17 MILLIGRAM, QW
     Route: 042
     Dates: start: 20180522, end: 20180529
  21. PACLITAXEL [Suspect]
     Active Substance: PACLITAXEL
     Dosage: 171.51 MILLIGRAM, QW
     Route: 042
     Dates: start: 20190109, end: 20190109
  22. CYCLOPHOSPHAMIDE [Suspect]
     Active Substance: CYCLOPHOSPHAMIDE
     Indication: Breast cancer
     Dosage: 50 MILLIGRAM, QD, MOST RECENT DOSE ON 09/MAR/2020
     Route: 048
     Dates: start: 20200219
  23. CAPECITABINE [Suspect]
     Active Substance: CAPECITABINE
     Indication: Breast cancer
     Dosage: 500 MILLIGRAM, FREQUENCY: OTHER MOST RECENT DOSE PRIOR TO THE EVENT: 19/DEC/2019
     Route: 048
     Dates: start: 20191126
  24. NERATINIB [Suspect]
     Active Substance: NERATINIB
     Indication: Breast cancer
     Dosage: 1440 MILLIGRAM, QD, MOST RECENT DOSE ON 18/JAN/2020
     Route: 048
     Dates: start: 20200108
  25. PERTUZUMAB [Suspect]
     Active Substance: PERTUZUMAB
     Indication: Breast cancer
     Dosage: 840 MILLIGRAM, Q3W, MOST RECENT DOSE PRIOR TO THE EVENT: 23/APR/2018
     Route: 042
     Dates: start: 20180328, end: 20180423
  26. PERTUZUMAB [Suspect]
     Active Substance: PERTUZUMAB
     Dosage: 420 MILLIGRAM, Q3W, MOST RECENT DOSE PRIOR TO THE EVENT: 09/JAN/2019
     Route: 042
     Dates: start: 20181214, end: 20190109
  27. METHOTREXATE [Suspect]
     Active Substance: METHOTREXATE
     Indication: Breast cancer
     Dosage: 2.5 MILLIGRAM, MOST RECENT DOSE ON 09/MAR/2020
     Route: 048
     Dates: start: 20200219
  28. ADO-TRASTUZUMAB EMTANSINE [Suspect]
     Active Substance: ADO-TRASTUZUMAB EMTANSINE
     Indication: Breast cancer
     Dosage: 230.4 MILLIGRAM, Q3W, MOST RECENT DOSE PRIOR TO THE EVENT: 28/JUN/2019
     Route: 042
     Dates: start: 20190131
  29. VINORELBINE [Suspect]
     Active Substance: VINORELBINE TARTRATE
     Indication: Breast cancer
     Dosage: 50 MILLIGRAM
     Route: 048
     Dates: start: 20191011, end: 20191025
  30. OCTENISEPT                         /06269102/ [Concomitant]
     Indication: Onycholysis
     Dosage: UNK, ONGOING = NOT CHECKED
     Dates: start: 20180725
  31. METAMIZOLE SODIUM [Concomitant]
     Active Substance: METAMIZOLE SODIUM
     Dosage: UNK, ONGOING = NOT CHECKED
     Dates: start: 20200224, end: 20200410
  32. ZOFRAN [Concomitant]
     Active Substance: ONDANSETRON HYDROCHLORIDE
     Dosage: UNK, ONGOING = NOT CHECKED
     Dates: start: 20200309, end: 20200410
  33. HYDROMORPHONE HYDROCHLORIDE [Concomitant]
     Active Substance: HYDROMORPHONE HYDROCHLORIDE
     Dosage: UNK, ONGOING = NOT CHECKED
     Dates: start: 20200228, end: 20200311
  34. HYDROMORPHONE HYDROCHLORIDE [Concomitant]
     Active Substance: HYDROMORPHONE HYDROCHLORIDE
     Dosage: UNK, ONGOING = NOT CHECKED
     Dates: start: 20200311, end: 20200410
  35. HYDROMORPHONE HYDROCHLORIDE [Concomitant]
     Active Substance: HYDROMORPHONE HYDROCHLORIDE
     Dosage: UNK, ONGOING = NOT CHECKED
     Dates: start: 20200228, end: 20200410
  36. PANTOPRAZOLE SODIUM [Concomitant]
     Active Substance: PANTOPRAZOLE SODIUM
     Dosage: UNK, ONGOING = NOT CHECKED
     Dates: start: 20191011, end: 20200410
  37. CAL D VITA [Concomitant]
     Dosage: UNK, ONGOING = NOT CHECKED
     Dates: start: 20190425
  38. DEXPANTHENOL [Concomitant]
     Active Substance: DEXPANTHENOL
     Indication: Conjunctivitis
     Dosage: UNK, ONGOING = NOT CHECKED
     Dates: start: 20180619
  39. XGEVA [Concomitant]
     Active Substance: DENOSUMAB
     Dosage: UNK, ONGOING = NOT CHECKED
     Dates: start: 20191219, end: 20200410

REACTIONS (2)
  - Dyspnoea [Recovered/Resolved]
  - C-reactive protein increased [Recovered/Resolved]

NARRATIVE: CASE EVENT DATE: 20200309
